FAERS Safety Report 10251927 (Version 1)
Quarter: 2014Q2

REPORT INFORMATION
  Report Type: Spontaneous
  Country: US (occurrence: None)
  Receive Date: 20140619
  Receipt Date: 20140619
  Transmission Date: 20141212
  Serious: Yes (Death)
  Sender: FDA-Public Use
  Company Number: KAD201406-000612

PATIENT
  Age: 56 Year
  Sex: Female

DRUGS (4)
  1. TOPOTECAN (TOPOTECAN INJECTIONS) (TOPOTECAN) [Suspect]
     Indication: METASTASES TO MENINGES
     Route: 037
  2. LIPOSOMAL CYTARABINE (CYTARABINE) [Suspect]
     Indication: METASTASES TO MENINGES
     Route: 037
  3. ERIBULIN (ERIBULIN) [Suspect]
     Dosage: 0.7 MG/M32, EVERY TWO WEEKS, INTRAVENOUS
     Route: 042
  4. PEGFILGRASTIM (PEGFILGRASTIM) [Suspect]
     Indication: LEUKOPENIA

REACTIONS (3)
  - Diplopia [None]
  - Hepatic cancer metastatic [None]
  - Hepatic cancer recurrent [None]
